FAERS Safety Report 21593969 (Version 1)
Quarter: 2022Q4

REPORT INFORMATION
  Report Type: Spontaneous
  Country: PT (occurrence: PT)
  Receive Date: 20221115
  Receipt Date: 20221115
  Transmission Date: 20230113
  Serious: Yes (Hospitalization, Other)
  Sender: FDA-Public Use
  Company Number: PT-CELLTRION INC.-2022PT019131

PATIENT

DRUGS (13)
  1. RITUXIMAB [Suspect]
     Active Substance: RITUXIMAB
     Indication: Antisynthetase syndrome
     Dosage: 2X1G, 2 WEEKS APART
  2. METHOTREXATE [Suspect]
     Active Substance: METHOTREXATE
     Indication: Antisynthetase syndrome
     Dosage: 20MG/WEEK
     Route: 058
  3. PREDNISOLONE [Suspect]
     Active Substance: PREDNISOLONE
     Indication: Antisynthetase syndrome
     Dosage: 1MG/KG/DAY
  4. PREDNISOLONE [Suspect]
     Active Substance: PREDNISOLONE
     Dosage: 7.5 MG/DAY AFTER 10 MONTHS OF RTX + TAC
  5. PREDNISOLONE [Suspect]
     Active Substance: PREDNISOLONE
     Dosage: AFTER 2 MONTHS OF CYC
  6. PREDNISOLONE [Suspect]
     Active Substance: PREDNISOLONE
     Dosage: 2ND FLARE
  7. PREDNISOLONE [Suspect]
     Active Substance: PREDNISOLONE
     Dosage: AFTER 3 MONTHS OF 1ST RTX + MTX
  8. PREDNISOLONE [Suspect]
     Active Substance: PREDNISOLONE
     Dosage: 3RD FLARE
  9. PREDNISOLONE [Suspect]
     Active Substance: PREDNISOLONE
     Dosage: DAY 0 TAC
  10. PREDNISOLONE [Suspect]
     Active Substance: PREDNISOLONE
     Dosage: AFTER 3 MONTHS OF 2ND RTX
  11. METHYLPREDNISOLONE [Suspect]
     Active Substance: METHYLPREDNISOLONE
     Indication: Antisynthetase syndrome
     Dosage: 1G/DAY
     Route: 042
  12. CYCLOPHOSPHAMIDE [Suspect]
     Active Substance: CYCLOPHOSPHAMIDE
     Indication: Antisynthetase syndrome
     Dosage: CYC (EUROLES)
  13. TACROLIMUS [Suspect]
     Active Substance: TACROLIMUS
     Indication: Antisynthetase syndrome
     Dosage: 0.075MG/KG/DAY MAINTENANCE THERAPY

REACTIONS (4)
  - Respiratory failure [Recovered/Resolved]
  - Pyrexia [Recovered/Resolved]
  - Dyspnoea [Recovered/Resolved]
  - Off label use [Unknown]
